FAERS Safety Report 8937730 (Version 1)
Quarter: 2012Q4

REPORT INFORMATION
  Report Type: 
  Country: US (occurrence: US)
  Receive Date: 20121130
  Receipt Date: 20121130
  Transmission Date: 20130627
  Serious: No
  Sender: FDA-Public Use
  Company Number: US-VERTEX PHARMACEUTICAL INC.-2012-025285

PATIENT
  Age: 46 Year
  Sex: Female
  Weight: 104 kg

DRUGS (13)
  1. VX-950 (TELAPREVIR) [Suspect]
     Indication: HEPATITIS C
     Dosage: 750 mg, tid
     Route: 048
  2. XANAX [Concomitant]
     Dosage: 0.25 mg, UNK
  3. LISINOPRIL [Concomitant]
     Dosage: 10 mg, UNK
  4. METFORMIN [Concomitant]
     Dosage: 1000 mg, UNK
  5. LAMOTRIGINE [Concomitant]
     Dosage: 200 mg, UNK
  6. BENZTROPINE [Concomitant]
     Dosage: 2 mg, UNK
  7. GLIPIZIDE ER [Concomitant]
     Dosage: 2.5 mg, UNK
  8. FISH OIL [Concomitant]
  9. VITAMIN D /00107901/ [Concomitant]
     Dosage: 1000 ut, UNK
  10. PROAIR HFA [Concomitant]
  11. GLUCOSAMINE                        /00943602/ [Concomitant]
     Dosage: 1000 mg, UNK
  12. MULTIVITAMIN                       /00097801/ [Concomitant]
  13. AER [Concomitant]

REACTIONS (4)
  - Blood count abnormal [Unknown]
  - Fatigue [Unknown]
  - Asthenia [Unknown]
  - Pruritus [Recovered/Resolved]
